FAERS Safety Report 7367077-5 (Version None)
Quarter: 2011Q1

REPORT INFORMATION
  Report Type: 
  Country: None (occurrence: None)
  Receive Date: 20110322
  Receipt Date: 20110309
  Transmission Date: 20110831
  Serious: Yes (Death)
  Sender: FDA-Public Use
  Company Number: US-TYCO HEALTHCARE/MALLINCKRODT-T201100567

PATIENT
  Age: 78 Year
  Sex: Male

DRUGS (5)
  1. NORCO [Concomitant]
     Dosage: 6 PER DAY
  2. DIAZEPAM [Concomitant]
     Dosage: TID
  3. OXYGEN [Concomitant]
  4. METHADONE [Suspect]
     Indication: PAIN
     Dosage: 120 MG, QD
  5. SOMA [Concomitant]
     Dosage: TID

REACTIONS (1)
  - DEATH [None]
